FAERS Safety Report 9505933 (Version 1)
Quarter: 2013Q1

REPORT INFORMATION
  Report Type: Spontaneous
  Country: US (occurrence: None)
  Receive Date: 20130208
  Receipt Date: 20130208
  Transmission Date: 20140127
  Serious: No
  Sender: FDA-Public Use
  Company Number: 2135225-2013-00007

PATIENT
  Sex: Female

DRUGS (1)
  1. ASCLERA [Suspect]
     Indication: SCLEROTHERAPY
     Dates: start: 20121101

REACTIONS (1)
  - Rash [None]
